FAERS Safety Report 6412866-4 (Version None)
Quarter: 2009Q4

REPORT INFORMATION
  Report Type: 
  Country: None (occurrence: None)
  Receive Date: 20091023
  Receipt Date: 20091012
  Transmission Date: 20100525
  Serious: Yes (Hospitalization, Other)
  Sender: FDA-Public Use
  Company Number: PHHY2009IT44312

PATIENT
  Age: 41 Year
  Sex: Female

DRUGS (13)
  1. CYCLOSPORINE [Suspect]
     Indication: STEM CELL TRANSPLANT
     Dosage: 2 MG/KG PER DAY
     Route: 042
  2. METHOTREXATE [Concomitant]
     Indication: STEM CELL TRANSPLANT
     Dosage: 10 MG/M^2
  3. METHOTREXATE [Concomitant]
     Dosage: 8 MG/M^2
  4. MELPHALAN [Concomitant]
     Dosage: 200 MG/M2, UNK
  5. MELPHALAN [Concomitant]
     Dosage: 140 MG/M2, UNK
  6. THIOTEPA [Concomitant]
     Dosage: 5 MG/KG, UNK
  7. FLUDARABINE [Concomitant]
     Dosage: 30 MG/M2, UNK
  8. BORTEZOMIB [Concomitant]
     Dosage: 1.3 MG/M2, UNK
  9. DEXAMETHASONE [Concomitant]
     Dosage: 40 MG, UNK
  10. CYCLOPHOSPHAMIDE [Concomitant]
     Dosage: 300 MG/M2, UNK
  11. METHYLPREDNISOLONE [Concomitant]
     Dosage: 2 MG/KG, UNK
  12. METHYLPREDNISOLONE [Concomitant]
     Dosage: 25 MG/DAY
  13. PREDNISONE [Concomitant]
     Dosage: 50 MG/DAY

REACTIONS (8)
  - ACUTE GRAFT VERSUS HOST DISEASE [None]
  - COMPLICATIONS OF BONE MARROW TRANSPLANT [None]
  - HAEMATOTOXICITY [None]
  - HEPATIC ENZYME INCREASED [None]
  - HYPERBILIRUBINAEMIA [None]
  - LEUKAEMIA PLASMACYTIC [None]
  - MARROW HYPERPLASIA [None]
  - RASH [None]
